FAERS Safety Report 9021775 (Version 1)
Quarter: 2013Q1

REPORT INFORMATION
  Report Type: Spontaneous
  Country: US (occurrence: US)
  Receive Date: 20130119
  Receipt Date: 20130119
  Transmission Date: 20140127
  Serious: No
  Sender: FDA-Public Use
  Company Number: US-ALLERGAN-1207954US

PATIENT
  Age: 29 Year
  Sex: Male

DRUGS (2)
  1. BOTOX? [Suspect]
     Indication: HYPERHIDROSIS
     Dosage: 50 UNITS, SINGLE
     Route: 030
     Dates: start: 20120508, end: 20120508
  2. BOTOX? [Suspect]
     Indication: HYPERHIDROSIS
     Dosage: 50 UNITS, SINGLE
     Route: 030
     Dates: start: 20120508, end: 20120508

REACTIONS (4)
  - Wrong technique in drug usage process [Unknown]
  - Poor quality drug administered [Unknown]
  - Therapeutic response decreased [Unknown]
  - Therapeutic response decreased [Unknown]
